FAERS Safety Report 8021346-4 (Version None)
Quarter: 2012Q1

REPORT INFORMATION
  Report Type: 
  Country: None (occurrence: None)
  Receive Date: 20120104
  Receipt Date: 20111222
  Transmission Date: 20120608
  Serious: Yes (Other)
  Sender: FDA-Public Use
  Company Number: US-AMGEN-USASP2011068445

PATIENT
  Age: 65 Year
  Sex: Female

DRUGS (4)
  1. CALCIUM ACETATE [Concomitant]
     Indication: HYPOCALCAEMIA
     Dosage: UNK
  2. XELODA [Concomitant]
  3. DIOVAN HCT [Concomitant]
  4. XGEVA [Suspect]
     Indication: BREAST CANCER METASTATIC
     Dosage: UNK
     Dates: start: 20110101

REACTIONS (2)
  - HYPERTRIGLYCERIDAEMIA [None]
  - HYPOCALCAEMIA [None]
